FAERS Safety Report 6339606-1 (Version None)
Quarter: 2009Q3

REPORT INFORMATION
  Report Type: 
  Country: None (occurrence: None)
  Receive Date: 20090903
  Receipt Date: 20090831
  Transmission Date: 20100115
  Serious: Yes (Hospitalization, Disabling, Other)
  Sender: FDA-Public Use
  Company Number: US-MERCK-0902USA02865

PATIENT
  Age: 59 Year
  Sex: Female

DRUGS (2)
  1. FOSAMAX [Suspect]
     Indication: OSTEOPOROSIS
     Route: 048
     Dates: start: 20031101, end: 20050901
  2. BONIVA [Suspect]
     Indication: OSTEOPOROSIS
     Route: 048
     Dates: start: 20050901, end: 20070210

REACTIONS (17)
  - ARTHRALGIA [None]
  - BACK PAIN [None]
  - BREAST DISORDER [None]
  - CONSTIPATION [None]
  - ECZEMA [None]
  - ELECTROCARDIOGRAM ABNORMAL [None]
  - ELECTROCARDIOGRAM ST SEGMENT ABNORMAL [None]
  - HERNIA [None]
  - HYPERSENSITIVITY [None]
  - LIPOMATOSIS [None]
  - OSTEOMYELITIS [None]
  - OSTEONECROSIS [None]
  - PULPITIS DENTAL [None]
  - RESORPTION BONE INCREASED [None]
  - SPIDER VEIN [None]
  - URTICARIA [None]
  - VEIN DISORDER [None]
